FAERS Safety Report 12326951 (Version 2)
Quarter: 2016Q2

REPORT INFORMATION
  Report Type: Spontaneous
  Country: JP (occurrence: JP)
  Receive Date: 20160503
  Receipt Date: 20160617
  Transmission Date: 20160815
  Serious: Yes (Death)
  Sender: FDA-Public Use
  Company Number: JP-BAYER-2016-076169

PATIENT
  Age: 79 Year
  Sex: Male

DRUGS (1)
  1. NEXAVAR [Suspect]
     Active Substance: SORAFENIB
     Indication: HEPATOCELLULAR CARCINOMA
     Route: 048

REACTIONS (7)
  - Blood bilirubin increased [None]
  - Superior vena cava syndrome [Fatal]
  - Metastases to lung [Fatal]
  - Blood pressure increased [None]
  - Visual field defect [Fatal]
  - Metastases to lymph nodes [Fatal]
  - Cerebral artery embolism [Fatal]
